FAERS Safety Report 13167736 (Version 1)
Quarter: 2017Q1

REPORT INFORMATION
  Report Type: Spontaneous
  Country: CH (occurrence: CH)
  Receive Date: 20170131
  Receipt Date: 20170131
  Transmission Date: 20170428
  Serious: Yes (Hospitalization)
  Sender: FDA-Public Use
  Company Number: CH-JNJFOC-20170124539

PATIENT
  Age: 89 Year
  Sex: Female

DRUGS (14)
  1. DUROGESIC [Suspect]
     Active Substance: FENTANYL
     Indication: PRODUCT USED FOR UNKNOWN INDICATION
     Route: 062
     Dates: start: 20161129, end: 20161221
  2. MOTILIUM [Concomitant]
     Active Substance: DOMPERIDONE
     Route: 065
     Dates: start: 20161218, end: 20161221
  3. CITALOPRAM [Concomitant]
     Active Substance: CITALOPRAM HYDROBROMIDE
     Route: 065
     Dates: end: 20161221
  4. ZOLPIDEM [Concomitant]
     Active Substance: ZOLPIDEM\ZOLPIDEM TARTRATE
     Route: 065
     Dates: end: 20161221
  5. CLEXANE [Concomitant]
     Active Substance: ENOXAPARIN SODIUM
     Route: 065
  6. NEXIUM [Concomitant]
     Active Substance: ESOMEPRAZOLE MAGNESIUM
     Route: 065
     Dates: end: 20161221
  7. NALOXON [Suspect]
     Active Substance: NALOXONE HYDROCHLORIDE
     Indication: ACCIDENTAL OVERDOSE
     Route: 040
     Dates: start: 20161221, end: 20161221
  8. PURSANA [Concomitant]
     Active Substance: FIG FRUIT OIL\SORBITOL
     Route: 065
     Dates: start: 20161216, end: 20161221
  9. TORASEMIDE [Concomitant]
     Active Substance: TORSEMIDE
     Route: 065
     Dates: start: 20161216, end: 20161221
  10. ASPIRIN CARDIO [Concomitant]
     Active Substance: ASPIRIN
     Dates: end: 20161221
  11. PASPERTIN [Concomitant]
     Active Substance: METOCLOPRAMIDE HYDROCHLORIDE
     Route: 065
     Dates: start: 20161221, end: 20161221
  12. AMLODIPIN [Concomitant]
     Active Substance: AMLODIPINE BESYLATE
     Dates: end: 20161221
  13. MORPHINE [Suspect]
     Active Substance: MORPHINE
     Indication: PRODUCT USED FOR UNKNOWN INDICATION
     Dosage: ONCE
     Route: 058
     Dates: start: 20161221, end: 20161221
  14. ARICEPT [Concomitant]
     Active Substance: DONEPEZIL HYDROCHLORIDE
     Route: 065
     Dates: start: 20161216, end: 20161221

REACTIONS (3)
  - Accidental overdose [Recovered/Resolved]
  - Ventricular tachycardia [Recovered/Resolved]
  - Coma [Recovered/Resolved]

NARRATIVE: CASE EVENT DATE: 20161221
